FAERS Safety Report 8276682-3 (Version None)
Quarter: 2012Q2

REPORT INFORMATION
  Report Type: 
  Country: None (occurrence: None)
  Receive Date: 20120412
  Receipt Date: 20120404
  Transmission Date: 20120825
  Serious: Yes (Hospitalization)
  Sender: FDA-Public Use
  Company Number: US-BAYER-2011-085189

PATIENT
  Age: 22 Year
  Sex: Female
  Weight: 126.98 kg

DRUGS (5)
  1. MOTRIN [Concomitant]
     Dosage: UNK UNK, PRN
     Dates: start: 19900101, end: 20100101
  2. BUSPAR [Concomitant]
     Indication: ANXIETY
  3. NEXIUM [Concomitant]
  4. YAZ [Suspect]
     Indication: CONTRACEPTION
     Dosage: UNK
     Dates: start: 20060101
  5. IBUPROFEN (ADVIL) [Concomitant]
     Dosage: UNK UNK, PRN
     Dates: start: 19900101, end: 20100101

REACTIONS (7)
  - GALLBLADDER DISORDER [None]
  - BILIARY DYSKINESIA [None]
  - GENERAL PHYSICAL HEALTH DETERIORATION [None]
  - ANHEDONIA [None]
  - PAIN [None]
  - EMOTIONAL DISTRESS [None]
  - ANXIETY [None]
